FAERS Safety Report 17745055 (Version 1)
Quarter: 2020Q2

REPORT INFORMATION
  Report Type: Spontaneous
  Country: US (occurrence: US)
  Receive Date: 20200502
  Receipt Date: 20200502
  Transmission Date: 20200714
  Serious: No
  Sender: FDA-Public Use
  Company Number: None

PATIENT

DRUGS (1)
  1. BOOMER NATURALS HAND SANITIZER [Suspect]
     Active Substance: ISOPROPYL ALCOHOL

REACTIONS (3)
  - Physical product label issue [None]
  - Product formulation issue [None]
  - Product label issue [None]
